FAERS Safety Report 5602009-9 (Version None)
Quarter: 2008Q1

REPORT INFORMATION
  Report Type: 
  Country: None (occurrence: None)
  Receive Date: 20080122
  Receipt Date: 20080115
  Transmission Date: 20080703
  Serious: Yes (Hospitalization)
  Sender: FDA-Public Use
  Company Number: 163-21880-07101679

PATIENT
  Age: 67 Year
  Sex: Male

DRUGS (32)
  1. REVLIMID [Suspect]
     Indication: MULTIPLE MYELOMA
     Dosage: 25 MG, 1 IN 1 D, ORAL
     Route: 048
     Dates: start: 20070828, end: 20070914
  2. ZETIA [Concomitant]
  3. GABAPENTIN [Concomitant]
  4. PERIDEX SWISH (CHLORHEXIDINE GLUCONATE) [Concomitant]
  5. PROTONIX [Concomitant]
  6. METFORMIN HCL [Concomitant]
  7. ACTOS [Concomitant]
  8. ZOCOR [Concomitant]
  9. PREDNISONE TAB [Concomitant]
  10. POTASSIUM (POTASSIUM) [Concomitant]
  11. GUAIFENESIN [Concomitant]
  12. OXYCODONE HCL [Concomitant]
  13. ZOFRAN [Concomitant]
  14. DUONEBS (COMBIVENT) [Concomitant]
  15. PULMICORT [Concomitant]
  16. LISINOPRIL [Concomitant]
  17. DECADRON [Concomitant]
  18. COLACE (DOCUSATE SODIUM) [Concomitant]
  19. NEURONTIN [Concomitant]
  20. HEPARIN [Concomitant]
  21. LANTUS [Concomitant]
  22. LISPRO (INSULIN LISPRO) [Concomitant]
  23. PRILOSEC [Concomitant]
  24. POTASSIUM CHLORIDE [Concomitant]
  25. SPIRIVA [Concomitant]
  26. ADVAIR DISKUS 100/50 [Concomitant]
  27. ZOMETA [Concomitant]
  28. INSULIN GLARGINE (INSULIN GLARGINE) [Concomitant]
  29. OMEPRAZOLE [Concomitant]
  30. FLUTICASONE PROPIONATE [Concomitant]
  31. TIOTROPIUM (TIOTROPIUM) [Concomitant]
  32. EZETIMBE (EZETIMIBE) [Concomitant]

REACTIONS (16)
  - ANAEMIA [None]
  - ASTHENIA [None]
  - ATRIOVENTRICULAR BLOCK FIRST DEGREE [None]
  - BLISTER [None]
  - CENTRAL NERVOUS SYSTEM LESION [None]
  - HERPES OESOPHAGITIS [None]
  - HERPES SIMPLEX [None]
  - INTERVERTEBRAL DISC PROTRUSION [None]
  - LEFT VENTRICULAR HYPERTROPHY [None]
  - PNEUMONIA [None]
  - PNEUMONITIS [None]
  - PRESYNCOPE [None]
  - RECTAL CANCER [None]
  - RIGHT ATRIAL DILATATION [None]
  - SPINAL COLUMN STENOSIS [None]
  - WHITE BLOOD CELL COUNT DECREASED [None]
